FAERS Safety Report 7628491-3 (Version None)
Quarter: 2011Q3

REPORT INFORMATION
  Report Type: 
  Country: None (occurrence: None)
  Receive Date: 20110705
  Receipt Date: 20110624
  Transmission Date: 20111222
  Serious: Yes (Other)
  Sender: FDA-Public Use
  Company Number: 2011028502

PATIENT
  Age: 67 Year
  Sex: Male
  Weight: 97.977 kg

DRUGS (7)
  1. ADAVIR (SERETIDE /01420901/ [Concomitant]
  2. COMBIVENT [Concomitant]
  3. SINEMET [Concomitant]
  4. ZEMAIRA [Suspect]
  5. ZEMAIRA [Suspect]
     Indication: ALPHA-1 ANTI-TRYPSIN DEFICIENCY
     Dosage: 60 MG/KG(+/-10%) AT A RATE OF 7.8 ML PER MIN INTRAVENOUS (NOT OTHERWISE SPECIFIED)
     Route: 042
     Dates: start: 20100901
  6. COUMADIN [Concomitant]
  7. ATENOLOL [Concomitant]

REACTIONS (2)
  - RESPIRATORY TRACT INFECTION [None]
  - FALL [None]
